FAERS Safety Report 19082586 (Version 2)
Quarter: 2021Q2

REPORT INFORMATION
  Report Type: Other
  Country: IN (occurrence: IN)
  Receive Date: 20210401
  Receipt Date: 20210419
  Transmission Date: 20210717
  Serious: Yes (Other)
  Sender: FDA-Public Use
  Company Number: IN-ROCHE-2797708

PATIENT

DRUGS (1)
  1. RITUXIMAB. [Suspect]
     Active Substance: RITUXIMAB
     Indication: OCULAR LYMPHOMA
     Route: 050

REACTIONS (11)
  - Vitreous haemorrhage [Unknown]
  - Conjunctival haemorrhage [Unknown]
  - Conjunctival hyperaemia [Unknown]
  - Keratic precipitates [Unknown]
  - Conjunctival oedema [Unknown]
  - Cataract subcapsular [Unknown]
  - Eyelid oedema [Unknown]
  - Iris adhesions [Unknown]
  - Retinal detachment [Unknown]
  - Intraocular pressure increased [Unknown]
  - Iris atrophy [Unknown]
